FAERS Safety Report 15607283 (Version 1)
Quarter: 2018Q4

REPORT INFORMATION
  Report Type: Spontaneous
  Country: ZA (occurrence: ZA)
  Receive Date: 20181112
  Receipt Date: 20181112
  Transmission Date: 20190205
  Serious: Yes (Hospitalization)
  Sender: FDA-Public Use
  Company Number: ZA-NOVOPROD-631027

PATIENT
  Age: 68 Year
  Sex: Female

DRUGS (2)
  1. ENAP-CO [Concomitant]
     Active Substance: ENALAPRIL MALEATE\HYDROCHLOROTHIAZIDE
     Dosage: UNK
  2. ESTROFEM [Suspect]
     Active Substance: ESTRADIOL CYPIONATE
     Indication: HORMONE REPLACEMENT THERAPY
     Dosage: 2 MG
     Route: 048
     Dates: start: 201807

REACTIONS (2)
  - Gastric disorder [Unknown]
  - Nausea [Unknown]
